FAERS Safety Report 11616567 (Version 2)
Quarter: 2015Q4

REPORT INFORMATION
  Report Type: Spontaneous
  Country: US (occurrence: US)
  Receive Date: 20151009
  Receipt Date: 20151202
  Transmission Date: 20160304
  Serious: No
  Sender: FDA-Public Use
  Company Number: GXBR2015US002155

PATIENT
  Age: 60 Year
  Sex: Male
  Weight: 90.7 kg

DRUGS (7)
  1. ASA [Concomitant]
     Active Substance: ASPIRIN
     Indication: HEADACHE
     Dosage: 81 MG, UNK
  2. SIMVASTATIN. [Concomitant]
     Active Substance: SIMVASTATIN
     Indication: BLOOD CHOLESTEROL INCREASED
     Dosage: UNK DF, UNK
  3. FISH OIL [Concomitant]
     Active Substance: FISH OIL
     Indication: BLOOD CHOLESTEROL INCREASED
     Dosage: 100 MG, QD
  4. AMOXICILLIN AND CLAVULANATE POTASSIUM TABLETS USP [Suspect]
     Active Substance: AMOXICILLIN\CLAVULANATE POTASSIUM
     Indication: INFECTION
     Dosage: 1 TABLET, BID
     Route: 048
     Dates: start: 20150916, end: 20150920
  5. INSULIN [Concomitant]
     Active Substance: INSULIN NOS
     Indication: DIABETES MELLITUS
     Dosage: UNK DF, UNK
  6. VALSARTAN. [Concomitant]
     Active Substance: VALSARTAN
     Indication: HYPERTENSION
     Dosage: 25 MG, QD
  7. METFORMIN [Concomitant]
     Active Substance: METFORMIN HYDROCHLORIDE
     Indication: DIABETES MELLITUS
     Dosage: 100 MG, UNK

REACTIONS (3)
  - Diarrhoea [Recovering/Resolving]
  - Faeces discoloured [Recovering/Resolving]
  - Faecal incontinence [Recovering/Resolving]

NARRATIVE: CASE EVENT DATE: 20150920
